FAERS Safety Report 5517046-2 (Version None)
Quarter: 2007Q4

REPORT INFORMATION
  Report Type: 
  Country: None (occurrence: None)
  Receive Date: 20071114
  Receipt Date: 20070717
  Transmission Date: 20080405
  Serious: No
  Sender: FDA-Public Use
  Company Number: A0664263A

PATIENT
  Age: 79 Year
  Sex: Male

DRUGS (2)
  1. COMMIT [Suspect]
  2. NICOTINE [Suspect]

REACTIONS (3)
  - DRUG INEFFECTIVE [None]
  - EXPIRED DRUG ADMINISTERED [None]
  - HICCUPS [None]
